FAERS Safety Report 4361510-9 (Version None)
Quarter: 2004Q2

REPORT INFORMATION
  Report Type: 
  Country: None (occurrence: None)
  Receive Date: 20040521
  Receipt Date: 20031126
  Transmission Date: 20050107
  Serious: No
  Sender: FDA-Public Use
  Company Number: US-GLAXOSMITHKLINE-A0441190A

PATIENT
  Age: 32 Year
  Sex: Female

DRUGS (1)
  1. ZYBAN [Suspect]
     Dosage: 150MG TWICE PER DAY
     Route: 048
     Dates: start: 20031115

REACTIONS (3)
  - DRY MOUTH [None]
  - FATIGUE [None]
  - NECK PAIN [None]
